FAERS Safety Report 10171108 (Version 1)
Quarter: 2014Q2

REPORT INFORMATION
  Report Type: Spontaneous
  Country: GB (occurrence: GB)
  Receive Date: 20140514
  Receipt Date: 20140514
  Transmission Date: 20141212
  Serious: Yes (Hospitalization, Other)
  Sender: FDA-Public Use
  Company Number: GB-JNJFOC-20140503125

PATIENT
  Age: 28 Year
  Sex: Female
  Weight: 84 kg

DRUGS (2)
  1. CO-CODAMOL [Suspect]
     Indication: STRESS
     Dosage: MORE THAN 50 PACKETS
  2. CO-CODAMOL [Suspect]
     Indication: BACK PAIN
     Dosage: MORE THAN 50 PACKETS

REACTIONS (4)
  - Exposure during pregnancy [Unknown]
  - Toxicity to various agents [Recovered/Resolved]
  - Accidental overdose [Recovered/Resolved]
  - Hepatic function abnormal [Recovered/Resolved]
